FAERS Safety Report 4601565-7 (Version None)
Quarter: 2005Q1

REPORT INFORMATION
  Report Type: 
  Country: None (occurrence: None)
  Receive Date: 20050131
  Receipt Date: 20041111
  Transmission Date: 20050727
  Serious: Yes (Hospitalization)
  Sender: FDA-Public Use
  Company Number: 200418750US

PATIENT
  Age: 20 Year
  Sex: Female

DRUGS (3)
  1. TELITHROMYCIN (KETEK) TABLETS [Suspect]
     Indication: ACUTE SINUSITIS
     Dosage: PO
     Route: 048
     Dates: start: 20041029, end: 20041029
  2. ETHINYL ESTRADIOL TAB [Concomitant]
  3. NORGESTIMATE (ORTHO TRI-CYCLEN) [Concomitant]

REACTIONS (4)
  - ANAPHYLACTIC REACTION [None]
  - CHOKING SENSATION [None]
  - DYSPNOEA [None]
  - STRIDOR [None]
